FAERS Safety Report 5636208-7 (Version None)
Quarter: 2008Q1

REPORT INFORMATION
  Report Type: 
  Country: None (occurrence: None)
  Receive Date: 20080220
  Receipt Date: 20080220
  Transmission Date: 20080703
  Serious: Yes (Hospitalization)
  Sender: FDA-Public Use
  Company Number: None

PATIENT
  Sex: Male
  Weight: 82.1 kg

DRUGS (4)
  1. CYTARABINE [Suspect]
     Dosage: 108 G
     Dates: end: 20080119
  2. ACYCLOVIR [Concomitant]
  3. DIFLUCAN [Concomitant]
  4. CIPRO [Concomitant]

REACTIONS (1)
  - SINUSITIS [None]
